FAERS Safety Report 18239271 (Version 1)
Quarter: 2020Q3

REPORT INFORMATION
  Report Type: Spontaneous
  Country: GB (occurrence: GB)
  Receive Date: 20200907
  Receipt Date: 20200907
  Transmission Date: 20201103
  Serious: Yes (Hospitalization, Other)
  Sender: FDA-Public Use
  Company Number: GB-SA-2020SA238745

PATIENT

DRUGS (4)
  1. CAPECITABINE. [Suspect]
     Active Substance: CAPECITABINE
     Indication: APPENDIX CANCER
     Dosage: UNK
     Route: 048
     Dates: start: 20200526, end: 20200630
  2. THYROXINE [Concomitant]
     Active Substance: LEVOTHYROXINE
     Dosage: UNK
  3. OXALIPLATIN. [Suspect]
     Active Substance: OXALIPLATIN
     Indication: APPENDIX CANCER
     Dosage: UNK
     Route: 051
     Dates: start: 20200526, end: 20200616
  4. AMLODIPINE [Concomitant]
     Active Substance: AMLODIPINE BESYLATE
     Dosage: UNK

REACTIONS (4)
  - Pulmonary embolism [Unknown]
  - Diarrhoea [Unknown]
  - Colitis [Unknown]
  - Sepsis [Unknown]

NARRATIVE: CASE EVENT DATE: 20200625
